FAERS Safety Report 8436592-5 (Version None)
Quarter: 2012Q2

REPORT INFORMATION
  Report Type: 
  Country: None (occurrence: None)
  Receive Date: 20120608
  Receipt Date: 20120608
  Transmission Date: 20120825
  Serious: Yes (Death)
  Sender: FDA-Public Use
  Company Number: None

PATIENT
  Sex: Female

DRUGS (1)
  1. IMMUNE GLOBULIN INTRAVENOUS (HUMAN) [Suspect]

REACTIONS (6)
  - HEADACHE [None]
  - MUCOSAL HAEMORRHAGE [None]
  - MOUTH HAEMORRHAGE [None]
  - EPISTAXIS [None]
  - CONVULSION [None]
  - HAEMORRHAGE INTRACRANIAL [None]
